FAERS Safety Report 6378793-6 (Version None)
Quarter: 2009Q3

REPORT INFORMATION
  Report Type: 
  Country: None (occurrence: None)
  Receive Date: 20090928
  Receipt Date: 20090916
  Transmission Date: 20100115
  Serious: Yes (Hospitalization)
  Sender: FDA-Public Use
  Company Number: KR-AVENTIS-200920583GDDC

PATIENT
  Age: 51 Year
  Sex: Male
  Weight: 73 kg

DRUGS (1)
  1. KETEK [Suspect]
     Route: 048
     Dates: start: 20051020, end: 20051024

REACTIONS (4)
  - DYSPNOEA [None]
  - EMPYEMA [None]
  - HYPERHIDROSIS [None]
  - PYREXIA [None]
